FAERS Safety Report 9529006 (Version 1)
Quarter: 2013Q3

REPORT INFORMATION
  Report Type: Spontaneous
  Country: US (occurrence: US)
  Receive Date: 20130917
  Receipt Date: 20130917
  Transmission Date: 20140515
  Serious: No
  Sender: FDA-Public Use
  Company Number: US-PFIZER INC-2013262980

PATIENT
  Age: 56 Year
  Sex: Male

DRUGS (1)
  1. CAMPTOSAR [Suspect]
     Indication: RECTAL CANCER
     Dosage: 180 MG, UNK
     Dates: start: 20130626

REACTIONS (2)
  - Disease progression [Unknown]
  - Rectal cancer [Unknown]
